FAERS Safety Report 5163089-0 (Version None)
Quarter: 2006Q4

REPORT INFORMATION
  Report Type: 
  Country: None (occurrence: None)
  Receive Date: 20061201
  Receipt Date: 20061116
  Transmission Date: 20070319
  Serious: Yes (Hospitalization)
  Sender: FDA-Public Use
  Company Number: BE-ABBOTT-06P-013-0350623-00

PATIENT
  Sex: Male

DRUGS (3)
  1. HUMIRA [Suspect]
     Indication: RHEUMATOID ARTHRITIS
     Route: 058
     Dates: start: 20041109, end: 20060501
  2. HUMIRA [Suspect]
     Route: 058
     Dates: start: 20060701, end: 20061001
  3. METHOTREXATE [Concomitant]
     Indication: RHEUMATOID ARTHRITIS

REACTIONS (5)
  - GENERAL PHYSICAL CONDITION ABNORMAL [None]
  - HYPERHIDROSIS [None]
  - NIGHT SWEATS [None]
  - SYNOVIAL CYST [None]
  - TOXOPLASMOSIS [None]
